FAERS Safety Report 4907218-X (Version None)
Quarter: 2006Q1

REPORT INFORMATION
  Report Type: 
  Country: None (occurrence: None)
  Receive Date: 20060207
  Receipt Date: 20060119
  Transmission Date: 20060701
  Serious: Yes (Hospitalization)
  Sender: FDA-Public Use
  Company Number: USA041286187

PATIENT
  Age: 87 Year
  Sex: Female
  Weight: 66.4 kg

DRUGS (6)
  1. FORTEO [Suspect]
     Indication: OSTEOPOROSIS
     Dates: start: 20040701
  2. DITROPAN XL [Concomitant]
  3. DETROL [Concomitant]
  4. PREMARIN [Concomitant]
  5. LORTAB [Concomitant]
  6. CHLORTHALIDONE [Concomitant]

REACTIONS (12)
  - BACK PAIN [None]
  - DIZZINESS [None]
  - FALL [None]
  - FATIGUE [None]
  - HEADACHE [None]
  - HEARING IMPAIRED [None]
  - MALAISE [None]
  - PAIN [None]
  - PNEUMONIA [None]
  - RIB FRACTURE [None]
  - SPINAL FRACTURE [None]
  - WALKING AID USER [None]
